FAERS Safety Report 21685510 (Version 1)
Quarter: 2022Q4

REPORT INFORMATION
  Report Type: Spontaneous
  Country: US (occurrence: US)
  Receive Date: 20221206
  Receipt Date: 20221206
  Transmission Date: 20230113
  Serious: Yes (Other)
  Sender: FDA-Public Use
  Company Number: US-drreddys-SPO/USA/22/0157614

PATIENT
  Age: 16 Year

DRUGS (3)
  1. ZENATANE [Suspect]
     Active Substance: ISOTRETINOIN
     Indication: Product used for unknown indication
     Dosage: RMA ISSUE DATE: 02/SEPTEMBER/2022 03:38:06 PM, 04/OCTOBER/2022 11:19:09 AM
     Dates: start: 20220109, end: 20221116
  2. OMEPRAZOLE [Concomitant]
     Active Substance: OMEPRAZOLE
     Indication: Product used for unknown indication
  3. MEPHENESIN [Concomitant]
     Active Substance: MEPHENESIN
     Indication: Product used for unknown indication

REACTIONS (1)
  - Suicidal ideation [Unknown]
